FAERS Safety Report 12684523 (Version 1)
Quarter: 2016Q3

REPORT INFORMATION
  Report Type: Spontaneous
  Country: US (occurrence: US)
  Receive Date: 20160825
  Receipt Date: 20160825
  Transmission Date: 20161109
  Serious: No
  Sender: FDA-Public Use
  Company Number: US-GLAXOSMITHKLINE-US2016GSK119192

PATIENT
  Age: 57 Year
  Sex: Female

DRUGS (1)
  1. TANZEUM [Suspect]
     Active Substance: ALBIGLUTIDE
     Indication: METABOLIC SYNDROME
     Dosage: 30 MG, WE
     Dates: start: 201606

REACTIONS (4)
  - Device use error [Unknown]
  - Off label use [Unknown]
  - Circumstance or information capable of leading to medication error [Unknown]
  - Product preparation error [Unknown]

NARRATIVE: CASE EVENT DATE: 201606
